FAERS Safety Report 14784356 (Version 1)
Quarter: 2018Q2

REPORT INFORMATION
  Report Type: Spontaneous
  Country: TR (occurrence: TR)
  Receive Date: 20180420
  Receipt Date: 20180420
  Transmission Date: 20180711
  Serious: Yes (Hospitalization, Other)
  Sender: FDA-Public Use
  Company Number: TR-PFIZER INC-2018130325

PATIENT
  Age: 68 Year
  Sex: Male

DRUGS (1)
  1. METHOTREXATE SODIUM. [Suspect]
     Active Substance: METHOTREXATE SODIUM
     Indication: PSORIASIS
     Dosage: 20 MG, WEEKLY
     Route: 030

REACTIONS (9)
  - Gingival bleeding [Unknown]
  - Bone marrow toxicity [Unknown]
  - Pyrexia [Unknown]
  - Hyperhidrosis [Unknown]
  - Hypophagia [Unknown]
  - Epistaxis [Unknown]
  - Malaise [Unknown]
  - Pancytopenia [Recovering/Resolving]
  - Stomatitis [Unknown]
